FAERS Safety Report 23738410 (Version 4)
Quarter: 2024Q2

REPORT INFORMATION
  Report Type: Spontaneous
  Country: CL (occurrence: CL)
  Receive Date: 20240412
  Receipt Date: 20240614
  Transmission Date: 20240716
  Serious: No
  Sender: FDA-Public Use
  Company Number: CL-JNJFOC-20240368901

PATIENT
  Sex: Female

DRUGS (4)
  1. SIMPONI [Suspect]
     Active Substance: GOLIMUMAB
     Indication: Rheumatoid arthritis
     Dosage: STRENGTH: 50.00 MG / 0.50 ML
     Route: 058
  2. SIMPONI [Suspect]
     Active Substance: GOLIMUMAB
  3. SIMPONI [Suspect]
     Active Substance: GOLIMUMAB
     Indication: Rheumatoid arthritis
     Dosage: STRENGTH: 50.00 MG / 0.50 ML
     Route: 058
  4. SIMPONI [Suspect]
     Active Substance: GOLIMUMAB

REACTIONS (3)
  - Device issue [Unknown]
  - Fatigue [Unknown]
  - Device issue [Unknown]
